FAERS Safety Report 7968078-6 (Version None)
Quarter: 2011Q4

REPORT INFORMATION
  Report Type: 
  Country: None (occurrence: None)
  Receive Date: 20111209
  Receipt Date: 20111206
  Transmission Date: 20120403
  Serious: Yes (Other)
  Sender: FDA-Public Use
  Company Number: US-PFIZER INC-2011143985

PATIENT
  Sex: Female

DRUGS (4)
  1. NAPROXEN [Concomitant]
     Indication: PAIN
     Dosage: UNK
     Dates: start: 20090401, end: 20110101
  2. CHANTIX [Suspect]
     Dosage: 1 MG, UNK
     Dates: start: 20090601, end: 20090901
  3. CHANTIX [Suspect]
     Indication: SMOKING CESSATION THERAPY
     Dosage: 1 MG, UNK
     Dates: start: 20090301, end: 20090401
  4. MORPHINE [Concomitant]
     Indication: FOOT FRACTURE
     Dosage: UNK
     Dates: start: 20000101, end: 20100101

REACTIONS (7)
  - ANXIETY [None]
  - AGGRESSION [None]
  - DEPRESSION [None]
  - INTENTIONAL OVERDOSE [None]
  - SUICIDE ATTEMPT [None]
  - SUICIDAL IDEATION [None]
  - ANGER [None]
